FAERS Safety Report 16986379 (Version 6)
Quarter: 2021Q4

REPORT INFORMATION
  Report Type: Spontaneous
  Country: US (occurrence: US)
  Receive Date: 20191101
  Receipt Date: 20211104
  Transmission Date: 20220303
  Serious: Yes (Other)
  Sender: FDA-Public Use
  Company Number: US-PFIZER INC-2019474173

PATIENT
  Age: 56 Year
  Sex: Female
  Weight: 108.86 kg

DRUGS (4)
  1. DETROL LA [Suspect]
     Active Substance: TOLTERODINE TARTRATE
     Indication: Hypertonic bladder
     Dosage: 2 MG, TWICE A DAY EVERY 12 HOURS
     Route: 048
  2. DETROL LA [Suspect]
     Active Substance: TOLTERODINE TARTRATE
     Indication: Urinary bladder suspension
     Dosage: 2 MG, 2X/DAY (TAKE 1 CAPSULE (2 MG TOTAL) BY MOUTH TWO TIMES A DAY)
     Route: 048
  3. DETROL LA [Suspect]
     Active Substance: TOLTERODINE TARTRATE
     Dosage: 2 MG, 2X/DAY
     Route: 048
     Dates: start: 20210329
  4. VALSARTAN [Concomitant]
     Active Substance: VALSARTAN
     Indication: Blood pressure abnormal
     Dosage: 80 MG, 1X/DAY

REACTIONS (5)
  - Anxiety [Unknown]
  - Depression [Unknown]
  - Road traffic accident [Unknown]
  - Tendon rupture [Unknown]
  - Off label use [Unknown]
